FAERS Safety Report 21486541 (Version 2)
Quarter: 2023Q1

REPORT INFORMATION
  Report Type: Spontaneous
  Country: GB (occurrence: GB)
  Receive Date: 20221020
  Receipt Date: 20230203
  Transmission Date: 20230418
  Serious: Yes (Life-Threatening, Hospitalization)
  Sender: FDA-Public Use
  Company Number: GB-MYLANLABS-2022M1113569

PATIENT
  Age: 31 Hour
  Sex: Female

DRUGS (4)
  1. NITROGLYCERIN [Suspect]
     Active Substance: NITROGLYCERIN
     Indication: Peripheral ischaemia
     Dosage: 18.7 MILLIGRAM, QD {(RECEIVED THREE...)
     Route: 062
  2. NITROGLYCERIN [Suspect]
     Active Substance: NITROGLYCERIN
     Dosage: 18.7 MILLIGRAM (APPLIED THREE FULL NITROGLYCERIN..)
     Route: 062
  3. SALINE [Concomitant]
     Active Substance: SODIUM CHLORIDE
     Indication: Hypervolaemia
     Dosage: 10 MILLILITRE PER KILOGRAM (BOLUS)
     Route: 042
  4. SALINE [Concomitant]
     Active Substance: SODIUM CHLORIDE
     Indication: Drug therapy

REACTIONS (5)
  - Accidental overdose [Recovering/Resolving]
  - Accidental exposure to product [Recovering/Resolving]
  - Methaemoglobinaemia [Recovered/Resolved]
  - Oxygen saturation decreased [Recovering/Resolving]
  - Off label use [Unknown]
